FAERS Safety Report 25141457 (Version 2)
Quarter: 2025Q2

REPORT INFORMATION
  Report Type: Spontaneous
  Country: US (occurrence: US)
  Receive Date: 20250331
  Receipt Date: 20250405
  Transmission Date: 20250717
  Serious: No
  Sender: SANOFI AVENTIS
  Company Number: US-SA-2025SA090657

PATIENT
  Sex: Female
  Weight: 63.64 kg

DRUGS (1)
  1. DUPIXENT [Suspect]
     Active Substance: DUPILUMAB
     Indication: Dermatitis atopic
     Dosage: 300 MG, QOW
     Route: 058

REACTIONS (7)
  - Nausea [Unknown]
  - Pain [Unknown]
  - Decreased activity [Unknown]
  - Migraine [Unknown]
  - Photophobia [Unknown]
  - Hyperacusis [Unknown]
  - Feeding disorder [Unknown]
